FAERS Safety Report 18753741 (Version 1)
Quarter: 2021Q1

REPORT INFORMATION
  Report Type: Report from Study
  Country: None (occurrence: ES)
  Receive Date: 20210118
  Receipt Date: 20210118
  Transmission Date: 20210419
  Serious: Yes (Other)
  Sender: FDA-Public Use
  Company Number: ES-ABBVIE-20K-144-3669177-00

PATIENT
  Age: 74 Year
  Sex: Female

DRUGS (2)
  1. IMBRUVICA [Suspect]
     Active Substance: IBRUTINIB
     Indication: CHRONIC LYMPHOCYTIC LEUKAEMIA
     Dosage: 2 CAPSULE
     Route: 048
     Dates: start: 20200616, end: 20201110
  2. IMBRUVICA [Suspect]
     Active Substance: IBRUTINIB
     Dosage: 1 CAPSULE
     Route: 048

REACTIONS (4)
  - Gout [Recovering/Resolving]
  - Loss of consciousness [Recovering/Resolving]
  - Blood pressure increased [Recovering/Resolving]
  - Myalgia [Recovering/Resolving]

NARRATIVE: CASE EVENT DATE: 20201101
